FAERS Safety Report 6771487-4 (Version None)
Quarter: 2010Q2

REPORT INFORMATION
  Report Type: 
  Country: None (occurrence: None)
  Receive Date: 20100616
  Receipt Date: 20100611
  Transmission Date: 20101027
  Serious: Yes (Death, Hospitalization)
  Sender: FDA-Public Use
  Company Number: JP-ROCHE-704239

PATIENT
  Sex: Female

DRUGS (25)
  1. TOCILIZUMAB [Suspect]
     Indication: RHEUMATOID ARTHRITIS
     Route: 041
     Dates: start: 20080830, end: 20080830
  2. TOCILIZUMAB [Suspect]
     Route: 041
     Dates: start: 20080927, end: 20080927
  3. TOCILIZUMAB [Suspect]
     Route: 041
     Dates: start: 20081018, end: 20081018
  4. TOCILIZUMAB [Suspect]
     Route: 041
     Dates: start: 20081115, end: 20081115
  5. TOCILIZUMAB [Suspect]
     Route: 041
     Dates: start: 20081213, end: 20081213
  6. TOCILIZUMAB [Suspect]
     Route: 041
     Dates: start: 20090110, end: 20090110
  7. TOCILIZUMAB [Suspect]
     Route: 041
     Dates: start: 20090207, end: 20090207
  8. TOCILIZUMAB [Suspect]
     Route: 041
     Dates: start: 20090307, end: 20090926
  9. TOCILIZUMAB [Suspect]
     Route: 041
     Dates: start: 20091024, end: 20091024
  10. TOCILIZUMAB [Suspect]
     Route: 041
     Dates: start: 20091121, end: 20091121
  11. TOCILIZUMAB [Suspect]
     Route: 041
     Dates: start: 20091219, end: 20091219
  12. TOCILIZUMAB [Suspect]
     Route: 041
     Dates: start: 20100116, end: 20100116
  13. TOCILIZUMAB [Suspect]
     Route: 041
     Dates: start: 20100213, end: 20100213
  14. TOCILIZUMAB [Suspect]
     Route: 041
     Dates: start: 20100313, end: 20100313
  15. RIMATIL [Concomitant]
     Route: 048
     Dates: end: 20100327
  16. METHOTREXATE [Concomitant]
     Dosage: FORM: PERORAL AGENT, NOTE: DIVIDED INTO TWO DOSES.AMOUNT: 2
     Route: 048
     Dates: end: 20081003
  17. ISCOTIN [Concomitant]
     Dosage: FORM: PERORAL AGENT
     Route: 048
     Dates: end: 20100327
  18. PREDONINE [Concomitant]
     Dosage: FORM: PERORAL AGENT
     Route: 048
  19. TEPRENONE [Concomitant]
     Dosage: DOSE FORM: PERORAL AGENT.DOSE DECREASED
     Route: 048
     Dates: end: 20090101
  20. TEPRENONE [Concomitant]
     Dosage: FORM: PERORAL AGENT
     Route: 048
     Dates: start: 20090101, end: 20100327
  21. BAYASPIRIN [Concomitant]
     Dosage: FORM: ENTERIC COATING DRUG
     Route: 048
     Dates: end: 20100327
  22. LANSOPRAZOLE [Concomitant]
     Dosage: DRUG NAME: LASOPRAN.
     Route: 048
     Dates: end: 20100327
  23. FAROM [Concomitant]
     Dosage: FORM: PERORAL AGENT
     Route: 048
     Dates: start: 20080927, end: 20081003
  24. AZULFIDINE [Concomitant]
     Dosage: FORM: ENTERIC COATING DRUG
     Route: 048
     Dates: end: 20100327
  25. ZITHROMAX [Concomitant]
     Dosage: FORM: PERORAL AGENT
     Route: 048
     Dates: start: 20100313, end: 20100315

REACTIONS (2)
  - BILE DUCT CANCER [None]
  - CEREBRAL INFARCTION [None]
